FAERS Safety Report 23797138 (Version 2)
Quarter: 2025Q3

REPORT INFORMATION
  Report Type: Report from Study
  Country: ZA (occurrence: ZA)
  Receive Date: 20240430
  Receipt Date: 20250805
  Transmission Date: 20251021
  Serious: Yes (Hospitalization)
  Sender: ABBVIE
  Company Number: ZA-ABBOTT-2024A-1380688

PATIENT
  Age: 74 Year
  Sex: Female

DRUGS (22)
  1. FENOFIBRATE [Suspect]
     Active Substance: FENOFIBRATE
     Indication: Blood cholesterol abnormal
     Dosage: IN THE MORNINGS
     Route: 048
  2. CITALOPRAM HYDROBROMIDE [Concomitant]
     Active Substance: CITALOPRAM HYDROBROMIDE
     Indication: Mental disorder
     Dosage: TAKE ONE TABLET IN THE MORNINGS
     Route: 048
  3. Allergex [Concomitant]
     Indication: Hypersensitivity
     Route: 048
  4. ACETAMINOPHEN\TRAMADOL [Concomitant]
     Active Substance: ACETAMINOPHEN\TRAMADOL
     Indication: Pain
     Route: 048
  5. CELECOXIB [Concomitant]
     Active Substance: CELECOXIB
     Indication: Sleep disorder
     Dosage: ONE CAPSULE IN THE MORNINGS
     Route: 048
  6. Entiro [Concomitant]
     Indication: Product used for unknown indication
     Dosage: TAKE ONE CAPSULE TWICE A DAY
     Route: 048
  7. Synaleve [Concomitant]
     Indication: Pain
     Dosage: TAKE ONE CAPSULE TWICE A DAY
     Route: 048
  8. Tramazac [Concomitant]
     Indication: Pain
     Route: 048
  9. ASPIRIN [Concomitant]
     Active Substance: ASPIRIN
     Indication: Product used for unknown indication
     Dosage: 300 MG TAKE TWO DISSOLVED IN WATER EIGHT HOURLY
     Route: 048
  10. URISPAS [Concomitant]
     Active Substance: FLAVOXATE HYDROCHLORIDE
     Indication: Hypertonic bladder
     Dosage: FOR FIVE DAYS
     Route: 048
  11. ZOLPIDEM TARTRATE [Concomitant]
     Active Substance: ZOLPIDEM TARTRATE
     Indication: Sleep disorder
     Dosage: TAKE TWO TABLETS AT NIGHT
     Route: 048
  12. ProbiFlora Rx Intestinal Flora Care [Concomitant]
     Indication: Product used for unknown indication
     Route: 048
  13. SULPIRIDE [Concomitant]
     Active Substance: SULPIRIDE
     Indication: Lactation insufficiency
     Route: 048
  14. Co maug [Concomitant]
     Indication: Product used for unknown indication
     Route: 048
  15. LEVOFLOXACIN [Concomitant]
     Active Substance: LEVOFLOXACIN
     Indication: Product used for unknown indication
     Route: 048
  16. ACETAMINOPHEN\TRAMADOL [Concomitant]
     Active Substance: ACETAMINOPHEN\TRAMADOL
     Indication: Pain
     Route: 048
  17. Tractinfect [Concomitant]
     Indication: Pain
     Route: 048
  18. AMITRIPTYLINE HYDROCHLORIDE [Concomitant]
     Active Substance: AMITRIPTYLINE HYDROCHLORIDE
     Indication: Depression
     Dosage: TAKE TWO TABLETS AT NIGHT, ?AMITRIPTYLINE HCL  KIARA
     Route: 048
  19. Stopayne [Concomitant]
     Indication: Product used for unknown indication
     Dosage: AFTER MEALS
     Route: 048
  20. ECOTRIN [Concomitant]
     Active Substance: ASPIRIN
     Indication: Thrombosis prophylaxis
     Route: 048
  21. Cipladantin [Concomitant]
     Indication: Product used for unknown indication
     Dosage: TAKE ONE CAPSULE IN THE MORNINGS
     Route: 048
  22. Flospasm [Concomitant]
     Indication: Hypertonic bladder
     Route: 048

REACTIONS (1)
  - Knee operation [Unknown]
